FAERS Safety Report 9639856 (Version 2)
Quarter: 2015Q4

REPORT INFORMATION
  Report Type: Spontaneous
  Country: FR (occurrence: FR)
  Receive Date: 20131023
  Receipt Date: 20151009
  Transmission Date: 20160305
  Serious: Yes (Hospitalization, Other)
  Sender: FDA-Public Use
  Company Number: FR-ASTRAZENECA-2013SE77231

PATIENT
  Age: 384 Month
  Sex: Female

DRUGS (4)
  1. VOGALENE [Concomitant]
     Active Substance: METOPIMAZINE
     Indication: VOMITING IN PREGNANCY
     Dates: start: 20130601
  2. GAVISCON [Concomitant]
     Active Substance: ALUMINUM HYDROXIDE\MAGNESIUM CARBONATE
     Indication: VOMITING IN PREGNANCY
     Dates: start: 20130601
  3. GAVISCON [Concomitant]
     Active Substance: ALUMINUM HYDROXIDE\MAGNESIUM CARBONATE
     Indication: GASTROOESOPHAGEAL REFLUX DISEASE
     Dates: start: 20130601
  4. MOPRAL [Suspect]
     Active Substance: OMEPRAZOLE SODIUM
     Route: 048
     Dates: start: 20130616, end: 20130730

REACTIONS (2)
  - Exposure during pregnancy [Unknown]
  - Hypersensitivity vasculitis [Recovered/Resolved]

NARRATIVE: CASE EVENT DATE: 20130616
